FAERS Safety Report 6204199-6 (Version None)
Quarter: 2009Q2

REPORT INFORMATION
  Report Type: 
  Country: None (occurrence: None)
  Receive Date: 20090526
  Receipt Date: 20090526
  Transmission Date: 20091009
  Serious: Yes (Hospitalization)
  Sender: FDA-Public Use
  Company Number: None

PATIENT
  Age: 37 Year
  Sex: Female
  Weight: 71.2147 kg

DRUGS (6)
  1. TURMERIC 500 MG [Suspect]
     Indication: DRUG THERAPY
     Dosage: 500 MG DAILY PO SEVERAL MONTHS
     Route: 048
  2. PHOSPHATIDYLCHOLINE [Concomitant]
  3. VITAMIN B-12 [Concomitant]
  4. OMEGA FISH OIL [Concomitant]
  5. CALCIUM [Concomitant]
  6. JUICE PLUS HERBS [Concomitant]

REACTIONS (2)
  - HYPOVOLAEMIA [None]
  - RETROPERITONEAL HAEMATOMA [None]
